FAERS Safety Report 12539055 (Version 1)
Quarter: 2016Q3

REPORT INFORMATION
  Report Type: Spontaneous
  Country: IN (occurrence: IN)
  Receive Date: 20160708
  Receipt Date: 20160708
  Transmission Date: 20161109
  Serious: Yes (Other)
  Sender: FDA-Public Use
  Company Number: IN-ACCORD-042168

PATIENT
  Age: 37 Year
  Sex: Male

DRUGS (3)
  1. HALOPERIDOL. [Suspect]
     Active Substance: HALOPERIDOL
     Indication: TOURETTE^S DISORDER
     Dosage: REDUCTION TO 2.5 MG AND CONTINUED WITH THE SAME DOSE
  2. CLONIDINE. [Suspect]
     Active Substance: CLONIDINE
     Indication: TOURETTE^S DISORDER
     Dosage: 50 MCG/DAY AND LASTLY CONTINUED ON SAME DOSE
  3. SERTRALINE [Suspect]
     Active Substance: SERTRALINE HYDROCHLORIDE
     Indication: TOURETTE^S DISORDER
     Dosage: 50 MG/DAY

REACTIONS (1)
  - Bipolar I disorder [Recovered/Resolved]
